FAERS Safety Report 8489585-6 (Version None)
Quarter: 2012Q3

REPORT INFORMATION
  Report Type: 
  Country: None (occurrence: None)
  Receive Date: 20120705
  Receipt Date: 20120622
  Transmission Date: 20120928
  Serious: Yes (Other)
  Sender: FDA-Public Use
  Company Number: US-JNJFOC-20120605532

PATIENT
  Sex: Female
  Weight: 73.48 kg

DRUGS (7)
  1. IBUPROFEN (ADVIL) [Suspect]
     Indication: PAIN
     Dosage: 3-4 DAILY FOR FEW MONTHS 2-3 YEARS AGO
     Route: 065
  2. CHANTIX [Suspect]
     Indication: SMOKING CESSATION THERAPY
     Dosage: FOR 3 WEEKS 3-4 YEARS AGO
     Route: 048
  3. TYLENOL (CAPLET) [Suspect]
     Indication: PAIN
     Dosage: 1-2 TABLETS EVERY 6 HOURS WHILE AWAKE FOR 3 WEEKS
     Route: 048
  4. NAPROXEN (ALEVE) [Suspect]
     Indication: PAIN
     Dosage: 1 OCCASIONALLY FOR FEW MONTHS 2-3 YEARS AGO
     Route: 065
  5. EXTRA STRENGTH TYLENOL PM [Suspect]
     Indication: SLEEP DISORDER THERAPY
     Dosage: 1 CAPLET NIGHTLY AT BEDTIME FOR ABOUT 4 MONTHS
     Route: 048
  6. EXTRA STRENGTH TYLENOL PM [Suspect]
     Indication: PAIN
     Dosage: 1 CAPLET NIGHTLY AT BEDTIME FOR ABOUT 4 MONTHS
     Route: 048
  7. EXTRA STRENGTH TYLENOL [Suspect]
     Indication: PAIN
     Dosage: 2 CAPLETS EVERY 6 HOURS WHILE AWAKE FOR 8 MONTHS 2-3 YEARS AGO
     Route: 048

REACTIONS (9)
  - HEPATIC PAIN [None]
  - URTICARIA [None]
  - WEIGHT INCREASED [None]
  - DRUG ADMINISTRATION ERROR [None]
  - BLOOD CHOLESTEROL INCREASED [None]
  - SYSTEMIC LUPUS ERYTHEMATOSUS [None]
  - VITAMIN D DEFICIENCY [None]
  - LIVER INJURY [None]
  - ANXIETY [None]
